FAERS Safety Report 9802946 (Version 1)
Quarter: 2014Q1

REPORT INFORMATION
  Report Type: Spontaneous
  Country: GB (occurrence: None)
  Receive Date: 20140102
  Receipt Date: 20140102
  Transmission Date: 20141002
  Serious: Yes (Life-Threatening, Other)
  Sender: FDA-Public Use
  Company Number: AUR-APL-2013-10848

PATIENT
  Age: 45 Year
  Sex: Male

DRUGS (2)
  1. TERBINAFINE (TERBINAFINE) [Suspect]
     Indication: TRICHOPHYTOSIS
     Route: 048
     Dates: start: 20131022, end: 20131216
  2. INSULIN [Concomitant]

REACTIONS (1)
  - Hepatitis [None]
